FAERS Safety Report 12455069 (Version 1)
Quarter: 2016Q2

REPORT INFORMATION
  Report Type: Spontaneous
  Country: JP (occurrence: JP)
  Receive Date: 20160610
  Receipt Date: 20160610
  Transmission Date: 20160815
  Serious: Yes (Life-Threatening)
  Sender: FDA-Public Use
  Company Number: JP-SUN PHARMACEUTICAL INDUSTRIES LTD-2016R1-118134

PATIENT
  Age: 68 Year
  Sex: Male

DRUGS (2)
  1. IRINOTECAN [Suspect]
     Active Substance: IRINOTECAN
     Indication: METASTATIC GASTRIC CANCER
  2. IRINOTECAN [Suspect]
     Active Substance: IRINOTECAN
     Indication: MALIGNANT PLEURAL EFFUSION
     Dosage: 165 MG/M2, 2/WEEK
     Route: 065
     Dates: start: 2014

REACTIONS (1)
  - Treatment failure [Unknown]

NARRATIVE: CASE EVENT DATE: 2014
